FAERS Safety Report 5796683-4 (Version None)
Quarter: 2008Q2

REPORT INFORMATION
  Report Type: 
  Country: None (occurrence: None)
  Receive Date: 20080630
  Receipt Date: 20080630
  Transmission Date: 20081010
  Serious: Yes (Hospitalization)
  Sender: FDA-Public Use
  Company Number: None

PATIENT
  Sex: Female
  Weight: 55.7 kg

DRUGS (2)
  1. DECITABINE 50MG [Suspect]
     Indication: OVARIAN CANCER
     Dosage: 20 MG/M2 5 X W IV
     Route: 042
     Dates: start: 20080512, end: 20080516
  2. OMEPREZOLE [Concomitant]

REACTIONS (1)
  - DEEP VEIN THROMBOSIS [None]
